FAERS Safety Report 9648094 (Version 4)
Quarter: 2013Q4

REPORT INFORMATION
  Report Type: Spontaneous
  Country: US (occurrence: US)
  Receive Date: 20131028
  Receipt Date: 20131115
  Transmission Date: 20140711
  Serious: No
  Sender: FDA-Public Use
  Company Number: US-PFIZER INC-2013257367

PATIENT
  Age: 46 Year
  Sex: Female
  Weight: 92.06 kg

DRUGS (16)
  1. LYRICA [Suspect]
     Indication: FIBROMYALGIA
     Dosage: 75 MG, DAILY
  2. LYRICA [Suspect]
     Dosage: 100 MG, DAILY
  3. LYRICA [Suspect]
     Dosage: 75 MG, DAILY
  4. LYRICA [Suspect]
     Dosage: 75 MG, 2X/DAY
     Route: 048
     Dates: start: 201212
  5. LYRICA [Suspect]
     Dosage: 100 MG, 2X/DAY
     Route: 048
     Dates: start: 201310
  6. ASPIRIN [Concomitant]
     Dosage: 81 MG, DAILY
  7. VITAMIN B12 [Concomitant]
     Dosage: 500 MG, DAILY
  8. HYDROCHLOROTHIAZIDE [Concomitant]
     Dosage: 12.5 MG, DAILY
  9. LISINOPRIL [Concomitant]
     Dosage: 40 MG, DAILY
  10. ZINC SULFATE [Concomitant]
     Dosage: 220 MG, DAILY
  11. ZOLPIDEM [Concomitant]
     Indication: SLEEP DISORDER
     Dosage: 10 MG, AS NEEDED
  12. FERROUS SULFATE [Concomitant]
     Dosage: 325 MG, 3X/DAY
  13. PANTOPRAZOLE [Concomitant]
     Dosage: 40 MG, DAILY
  14. VITAMIN B2 [Concomitant]
     Dosage: 5000 IU, WEEKLY
  15. HYDROCODONE [Concomitant]
     Indication: PAIN
     Dosage: 325 MG, AS NEEDED
  16. COPAXONE [Concomitant]
     Indication: MULTIPLE SCLEROSIS
     Dosage: 20 MG, DAILY
     Dates: start: 20131019

REACTIONS (6)
  - Local swelling [Recovered/Resolved]
  - Pain in extremity [Not Recovered/Not Resolved]
  - Drug intolerance [Unknown]
  - Swelling [Unknown]
  - Pain [Unknown]
  - Drug hypersensitivity [Unknown]
